FAERS Safety Report 9242478 (Version 1)
Quarter: 2013Q2

REPORT INFORMATION
  Report Type: Spontaneous
  Country: US (occurrence: US)
  Receive Date: 20130419
  Receipt Date: 20130419
  Transmission Date: 20140414
  Serious: Yes (Other)
  Sender: FDA-Public Use
  Company Number: US-JNJFOC-20130407464

PATIENT
  Age: 9 Year
  Sex: Male

DRUGS (1)
  1. CHILDREN^S TYLENOL LIQUID CHERRY [Suspect]
     Indication: PRODUCT USED FOR UNKNOWN INDICATION
     Dosage: 2 AND HALF TEASPOONS
     Route: 065
     Dates: start: 201304

REACTIONS (3)
  - Hallucination [Recovered/Resolved]
  - Abnormal behaviour [Recovered/Resolved]
  - Paranoia [Recovered/Resolved]
